FAERS Safety Report 10927965 (Version 1)
Quarter: 2015Q1

REPORT INFORMATION
  Report Type: Spontaneous
  Country: US (occurrence: None)
  Receive Date: 20150316
  Receipt Date: 20150316
  Transmission Date: 20150721
  Serious: No
  Sender: FDA-Public Use
  Company Number: None

PATIENT
  Age: 42 Year
  Sex: Male
  Weight: 107.7 kg

DRUGS (1)
  1. FLUNISOLIDE. [Suspect]
     Active Substance: FLUNISOLIDE
     Indication: RHINITIS ALLERGIC
     Route: 055
     Dates: start: 20100901, end: 20150227

REACTIONS (2)
  - Product quality issue [None]
  - Drug ineffective [None]
